FAERS Safety Report 9901059 (Version 1)
Quarter: 2014Q1

REPORT INFORMATION
  Report Type: Report from Study
  Country: US (occurrence: US)
  Receive Date: 20140217
  Receipt Date: 20140217
  Transmission Date: 20141002
  Serious: No
  Sender: FDA-Public Use
  Company Number: US-ALEXION-A201400416

PATIENT
  Sex: 0

DRUGS (4)
  1. SOLIRIS [Suspect]
     Indication: PAROXYSMAL NOCTURNAL HAEMOGLOBINURIA
     Dosage: 900 MG, Q2W
     Route: 042
     Dates: start: 20130930
  2. AZOR                               /00595201/ [Concomitant]
     Indication: HYPERTENSION
     Dosage: 5MG/20MG, QD
     Dates: start: 20130826
  3. FOLIC ACID [Concomitant]
     Indication: FOLATE DEFICIENCY
     Dosage: UNK
     Dates: start: 20130826
  4. IRON [Concomitant]
     Indication: MINERAL SUPPLEMENTATION
     Dosage: 325 MG, UNK
     Dates: start: 20130826

REACTIONS (1)
  - Rash [Not Recovered/Not Resolved]
